FAERS Safety Report 11437938 (Version 4)
Quarter: 2015Q3

REPORT INFORMATION
  Report Type: Report from Study
  Country: DE (occurrence: DE)
  Receive Date: 20150831
  Receipt Date: 20150909
  Transmission Date: 20151125
  Serious: Yes (Hospitalization, Other)
  Sender: FDA-Public Use
  Company Number: DE-BRISTOL-MYERS SQUIBB COMPANY-BMS-2015-056154

PATIENT
  Age: 70 Year
  Sex: Male
  Weight: 54 kg

DRUGS (1)
  1. CETUXIMAB [Suspect]
     Active Substance: CETUXIMAB
     Indication: HEAD AND NECK CANCER
     Dosage: 400 MG/M2, UNK
     Route: 042
     Dates: start: 20150812, end: 20150812

REACTIONS (8)
  - Multi-organ failure [Not Recovered/Not Resolved]
  - Pneumonia aspiration [Not Recovered/Not Resolved]
  - Faecal vomiting [Not Recovered/Not Resolved]
  - Pyrexia [Not Recovered/Not Resolved]
  - Seizure [Not Recovered/Not Resolved]
  - Diarrhoea [Recovered/Resolved with Sequelae]
  - Sepsis [Not Recovered/Not Resolved]
  - Ileus [Not Recovered/Not Resolved]

NARRATIVE: CASE EVENT DATE: 20150815
